FAERS Safety Report 23079202 (Version 2)
Quarter: 2023Q4

REPORT INFORMATION
  Report Type: Report from Study
  Country: CN (occurrence: CN)
  Receive Date: 20231018
  Receipt Date: 20231027
  Transmission Date: 20240109
  Serious: Yes (Hospitalization)
  Sender: FDA-Public Use
  Company Number: CN-PFIZER INC-PV202300167485

PATIENT
  Age: 58 Year
  Sex: Male
  Weight: 60 kg

DRUGS (8)
  1. EPIRUBICIN HYDROCHLORIDE [Suspect]
     Active Substance: EPIRUBICIN HYDROCHLORIDE
     Indication: Hepatic cancer
     Dosage: 40 MG, AS NEEDED, ROUTE: TRANSCATHETER INFUSION
     Dates: start: 20230818, end: 20230913
  2. CAMRELIZUMAB [Suspect]
     Active Substance: CAMRELIZUMAB
     Indication: Hepatic cancer
     Dosage: 200 MG, EVERY 3 WEEKS, FOR INJECTION, INTRAVENOUS INFUSION, AIRUIKA
     Route: 042
     Dates: start: 20230818, end: 20230908
  3. APATINIB [Suspect]
     Active Substance: APATINIB
     Indication: Hepatic cancer
     Dosage: 250 MG, 1X/DAY, TABLETS, AITAN
     Route: 048
     Dates: start: 20230822, end: 20230909
  4. ENTECAVIR [Concomitant]
     Active Substance: ENTECAVIR
     Indication: Chronic hepatitis B
     Dosage: 0.5 MG, 1X/DAY
     Route: 048
     Dates: start: 20230820
  5. GLUCUROLACTONE [Concomitant]
     Active Substance: GLUCUROLACTONE
     Indication: Prophylaxis
     Dosage: 0.2 G, 3X/DAY
     Route: 048
     Dates: start: 20230914, end: 20230915
  6. OMEPRAZOLE [Concomitant]
     Active Substance: OMEPRAZOLE
     Indication: Prophylaxis
     Dosage: 20 MG, 1X/DAY, ENTERIC-COATED CAPSULES
     Route: 048
     Dates: start: 20230914, end: 20230915
  7. ONDANSETRON [Concomitant]
     Active Substance: ONDANSETRON
     Indication: Vomiting
     Dosage: 8 MG, 2X/DAY
     Route: 048
     Dates: start: 20230914, end: 20230915
  8. METOCLOPRAMIDE [Concomitant]
     Active Substance: METOCLOPRAMIDE
     Indication: Prophylaxis
     Dosage: 5 MG, 3X/DAY
     Route: 048
     Dates: start: 20230914, end: 20230915

REACTIONS (1)
  - Intestinal obstruction [Recovering/Resolving]

NARRATIVE: CASE EVENT DATE: 20230915
